FAERS Safety Report 24227845 (Version 1)
Quarter: 2024Q3

REPORT INFORMATION
  Report Type: Spontaneous
  Country: US (occurrence: None)
  Receive Date: 20240819
  Receipt Date: 20240819
  Transmission Date: 20241016
  Serious: Yes (Life-Threatening, Hospitalization)
  Sender: Public
  Company Number: None

PATIENT
  Age: 27 Year
  Sex: Male
  Weight: 68.04 kg

DRUGS (1)
  1. RINVOQ [Suspect]
     Active Substance: UPADACITINIB
     Indication: Colitis ulcerative
     Dosage: 45 MG DAILY ORAL
     Route: 048
     Dates: start: 20240216, end: 20240311

REACTIONS (3)
  - Colitis ulcerative [None]
  - Hypersensitivity [None]
  - Joint swelling [None]

NARRATIVE: CASE EVENT DATE: 20240312
